FAERS Safety Report 14461772 (Version 1)
Quarter: 2018Q1

REPORT INFORMATION
  Report Type: Other
  Country: US (occurrence: US)
  Receive Date: 20180130
  Receipt Date: 20180130
  Transmission Date: 20180509
  Serious: No
  Sender: FDA-Public Use
  Company Number: US-ACORDA-ACO_143913_2017

PATIENT
  Sex: Male

DRUGS (1)
  1. AMPYRA [Suspect]
     Active Substance: DALFAMPRIDINE
     Indication: CEREBELLAR ATAXIA
     Dosage: 10 MG, BID
     Route: 048

REACTIONS (3)
  - Balance disorder [Unknown]
  - Dysarthria [Unknown]
  - Off label use [Unknown]
